FAERS Safety Report 22138576 (Version 1)
Quarter: 2023Q1

REPORT INFORMATION
  Report Type: Spontaneous
  Country: CN (occurrence: CN)
  Receive Date: 20230326
  Receipt Date: 20230326
  Transmission Date: 20230418
  Serious: Yes (Other)
  Sender: FDA-Public Use
  Company Number: CN-009507513-2303CHN007495

PATIENT
  Age: 60 Year
  Sex: Male
  Weight: 57 kg

DRUGS (6)
  1. KEYTRUDA [Suspect]
     Active Substance: PEMBROLIZUMAB
     Indication: Lung neoplasm malignant
     Dosage: 200 MG ONCE
     Route: 041
     Dates: start: 20230208, end: 20230208
  2. PACLITAXEL [Suspect]
     Active Substance: PACLITAXEL
     Indication: Lung neoplasm malignant
     Dosage: 200 MG ONCE
     Route: 041
     Dates: start: 20230208, end: 20230208
  3. CARBOPLATIN [Suspect]
     Active Substance: CARBOPLATIN
     Indication: Lung neoplasm malignant
     Dosage: 500 MG QD
     Route: 041
     Dates: start: 20230208, end: 20230208
  4. SODIUM CHLORIDE [Concomitant]
     Active Substance: SODIUM CHLORIDE
     Dosage: 100 ML IV DRIP ONCE
     Route: 041
     Dates: start: 20230208
  5. SODIUM CHLORIDE [Concomitant]
     Active Substance: SODIUM CHLORIDE
     Dosage: 40ML IV DRIP ONCE
     Route: 041
     Dates: start: 20230208
  6. DEXTROSE [Concomitant]
     Active Substance: DEXTROSE
     Dosage: 250ML IV DRIP QD
     Route: 041
     Dates: start: 20230208

REACTIONS (1)
  - Myelosuppression [Recovering/Resolving]

NARRATIVE: CASE EVENT DATE: 20230220
